FAERS Safety Report 19499699 (Version 1)
Quarter: 2021Q3

REPORT INFORMATION
  Report Type: Spontaneous
  Country: US (occurrence: US)
  Receive Date: 20210706
  Receipt Date: 20210706
  Transmission Date: 20211014
  Serious: Yes (Hospitalization, Other)
  Sender: FDA-Public Use
  Company Number: US-ASTRAZENECA-2021A571582

PATIENT
  Age: 775 Month
  Sex: Female
  Weight: 82.6 kg

DRUGS (1)
  1. LYNPARZA [Suspect]
     Active Substance: OLAPARIB
     Indication: BREAST CANCER STAGE IV
     Dosage: TWO TIMES A DAY
     Route: 048
     Dates: start: 202104, end: 202105

REACTIONS (5)
  - Fatigue [Unknown]
  - Dehydration [Unknown]
  - Wrong technique in product usage process [Recovered/Resolved]
  - Meningitis bacterial [Not Recovered/Not Resolved]
  - Weight decreased [Unknown]

NARRATIVE: CASE EVENT DATE: 202105
